FAERS Safety Report 7945119-3 (Version None)
Quarter: 2011Q4

REPORT INFORMATION
  Report Type: 
  Country: None (occurrence: None)
  Receive Date: 20111129
  Receipt Date: 20111129
  Transmission Date: 20120403
  Serious: Yes (Other)
  Sender: FDA-Public Use
  Company Number: None

PATIENT
  Sex: Male
  Weight: 74.842 kg

DRUGS (1)
  1. PROPECIA [Suspect]
     Indication: ALOPECIA
     Dosage: 1MG
     Route: 048
     Dates: start: 20010301, end: 20110115

REACTIONS (11)
  - GYNAECOMASTIA [None]
  - SLEEP DISORDER [None]
  - TEMPERATURE INTOLERANCE [None]
  - LOSS OF LIBIDO [None]
  - INSULIN RESISTANCE [None]
  - SEMEN VOLUME DECREASED [None]
  - OSTEOPOROSIS [None]
  - MENTAL DISORDER [None]
  - ERECTILE DYSFUNCTION [None]
  - ANAEMIA [None]
  - EMOTIONAL DISORDER [None]
